FAERS Safety Report 7629016-9 (Version None)
Quarter: 2011Q3

REPORT INFORMATION
  Report Type: 
  Country: None (occurrence: None)
  Receive Date: 20110722
  Receipt Date: 20110713
  Transmission Date: 20111222
  Serious: Yes (Other)
  Sender: FDA-Public Use
  Company Number: US-PFIZER INC-2011159571

PATIENT
  Age: 28 Year
  Sex: Female
  Weight: 92.063 kg

DRUGS (3)
  1. ZYVOX [Suspect]
     Indication: CELLULITIS
     Dosage: 600 MG, 2X/DAY
     Dates: start: 20110606, end: 20110614
  2. DROTAVERINE [Concomitant]
     Indication: MYALGIA
     Dosage: UNK
     Dates: start: 20110530
  3. PAPAVERINE [Concomitant]
     Indication: MYALGIA
     Dosage: UNK
     Dates: start: 20110530

REACTIONS (2)
  - ABORTION SPONTANEOUS [None]
  - VAGINAL HAEMORRHAGE [None]
